FAERS Safety Report 6706382-X (Version None)
Quarter: 2010Q2

REPORT INFORMATION
  Report Type: 
  Country: None (occurrence: None)
  Receive Date: 20100503
  Receipt Date: 20100420
  Transmission Date: 20101027
  Serious: Yes (Other)
  Sender: FDA-Public Use
  Company Number: PHHY2010JP20988

PATIENT
  Sex: Male

DRUGS (2)
  1. GLEEVEC [Suspect]
     Indication: GASTROINTESTINAL STROMAL TUMOUR
     Dosage: 400 MG DAILY
     Route: 048
  2. VESICARE [Interacting]
     Dosage: 10 MG, UNK
     Route: 048

REACTIONS (2)
  - BLOOD CHOLINESTERASE DECREASED [None]
  - DRUG INTERACTION [None]
